FAERS Safety Report 9218769 (Version 4)
Quarter: 2013Q2

REPORT INFORMATION
  Report Type: Spontaneous
  Country: US (occurrence: US)
  Receive Date: 20130409
  Receipt Date: 20130508
  Transmission Date: 20140414
  Serious: Yes (Other)
  Sender: FDA-Public Use
  Company Number: US-009507513-1301USA011186

PATIENT
  Age: 0 Year
  Sex: Male
  Weight: 5.13 kg

DRUGS (1)
  1. BCG VACCINE USP [Suspect]
     Indication: PROPHYLAXIS
     Dosage: UNK
     Route: 023
     Dates: start: 20130104, end: 20130104

REACTIONS (5)
  - Vaccination site pain [Recovered/Resolved]
  - Vaccination site induration [Recovered/Resolved]
  - Vaccination site erythema [Recovered/Resolved]
  - Incorrect route of drug administration [Unknown]
  - Injection site scab [Recovering/Resolving]
